FAERS Safety Report 21886528 (Version 2)
Quarter: 2023Q1

REPORT INFORMATION
  Report Type: Spontaneous
  Country: US (occurrence: US)
  Receive Date: 20230119
  Receipt Date: 20230211
  Transmission Date: 20230417
  Serious: Yes (Hospitalization)
  Sender: FDA-Public Use
  Company Number: US-TEVA-2023-US-2845748

PATIENT
  Age: 58 Year
  Sex: Male

DRUGS (1)
  1. OLANZAPINE [Suspect]
     Active Substance: OLANZAPINE
     Indication: Major depression
     Dosage: AN EMPTY BOTTLE OF OLANZAPINE 7.5MG TABLETS WAS FOUND IN HIS CLOTHES
     Route: 065

REACTIONS (5)
  - Nervous system disorder [Recovered/Resolved]
  - Cerebrovascular accident [Recovered/Resolved]
  - Sinus tachycardia [Unknown]
  - Intentional overdose [Unknown]
  - Intentional product misuse [Unknown]
